FAERS Safety Report 22186790 (Version 1)
Quarter: 2023Q2

REPORT INFORMATION
  Report Type: Spontaneous
  Country: US (occurrence: None)
  Receive Date: 20230407
  Receipt Date: 20230407
  Transmission Date: 20230722
  Serious: No
  Sender: FDA-Public Use
  Company Number: US-Merck Healthcare KGaA-9393117

PATIENT
  Sex: Male

DRUGS (1)
  1. SEROSTIM [Suspect]
     Active Substance: SOMATROPIN
     Indication: HIV infection
     Route: 058
     Dates: start: 20230105

REACTIONS (1)
  - Peripheral swelling [Recovering/Resolving]
